FAERS Safety Report 18972452 (Version 2)
Quarter: 2021Q2

REPORT INFORMATION
  Report Type: Spontaneous
  Country: US (occurrence: US)
  Receive Date: 20210305
  Receipt Date: 20210411
  Transmission Date: 20210717
  Serious: Yes (Hospitalization, Other)
  Sender: FDA-Public Use
  Company Number: NVSC2021US042079

PATIENT
  Sex: Female

DRUGS (3)
  1. ENTRESTO [Suspect]
     Active Substance: SACUBITRIL\VALSARTAN
     Indication: CARDIAC FAILURE CHRONIC
     Dosage: 100 MG, BID(DOSE: 49/51 MG)
     Route: 065
  2. CARVEDILOL. [Suspect]
     Active Substance: CARVEDILOL
     Dosage: 0.5 DF, BID
     Route: 065
  3. CARVEDILOL. [Suspect]
     Active Substance: CARVEDILOL
     Indication: PRODUCT USED FOR UNKNOWN INDICATION
     Dosage: 1 DF, BID
     Route: 065

REACTIONS (12)
  - Ejection fraction decreased [Unknown]
  - Chest pain [Recovered/Resolved]
  - Hypoaesthesia oral [Unknown]
  - Wrong technique in product usage process [Unknown]
  - Hypotension [Unknown]
  - Swelling [Unknown]
  - Myocardial infarction [Unknown]
  - Dizziness [Unknown]
  - Arterial occlusive disease [Unknown]
  - Cerebrovascular accident [Unknown]
  - Weight increased [Unknown]
  - Thrombosis [Unknown]
